FAERS Safety Report 9865884 (Version 2)
Quarter: 2014Q1

REPORT INFORMATION
  Report Type: Spontaneous
  Country: US (occurrence: US)
  Receive Date: 20140203
  Receipt Date: 20140203
  Transmission Date: 20141002
  Serious: No
  Sender: FDA-Public Use
  Company Number: US-ALLERGAN-1313068US

PATIENT
  Sex: Female

DRUGS (6)
  1. RESTASIS [Suspect]
     Indication: DRY EYE
     Dosage: 2 GTT, BID
     Route: 047
  2. LEVOTHYROXINE [Concomitant]
     Indication: THYROID DISORDER
     Dosage: UNK
     Route: 048
  3. PREVACID [Concomitant]
     Indication: GASTROOESOPHAGEAL REFLUX DISEASE
     Dosage: UNK
     Route: 048
  4. NATURAL OPHTHALMICS [Concomitant]
     Indication: DRY EYE
     Dosage: UNK
     Route: 047
     Dates: start: 201306
  5. CO Q 10                            /00517201/ [Concomitant]
     Indication: SUPPLEMENTATION THERAPY
     Dosage: UNK UNK, QD
     Route: 048
  6. DOXYCYCLINE [Concomitant]
     Indication: LYME DISEASE
     Dosage: USES FOR 21 DAYS WHEN IT COMES AND GOES
     Route: 048

REACTIONS (7)
  - Abnormal sensation in eye [Recovering/Resolving]
  - Eye disorder [Recovering/Resolving]
  - Eye swelling [Recovering/Resolving]
  - Foreign body sensation in eyes [Recovering/Resolving]
  - Foreign body sensation in eyes [Recovering/Resolving]
  - Ocular hyperaemia [Recovering/Resolving]
  - Eye pain [Recovering/Resolving]
